FAERS Safety Report 10687140 (Version 1)
Quarter: 2015Q1

REPORT INFORMATION
  Report Type: Spontaneous
  Country: CA (occurrence: CA)
  Receive Date: 20150102
  Receipt Date: 20150102
  Transmission Date: 20150720
  Serious: Yes (Hospitalization)
  Sender: FDA-Public Use
  Company Number: CA-ROCHE-1516331

PATIENT
  Age: 55 Year
  Sex: Female

DRUGS (6)
  1. ONBREZ [Suspect]
     Active Substance: INDACATEROL
     Indication: PRODUCT USED FOR UNKNOWN INDICATION
     Route: 065
  2. PREDNISONE. [Concomitant]
     Active Substance: PREDNISONE
  3. XOLAIR [Suspect]
     Active Substance: OMALIZUMAB
     Route: 058
     Dates: start: 20141222
  4. FLOVENT [Concomitant]
     Active Substance: FLUTICASONE PROPIONATE
  5. XOLAIR [Suspect]
     Active Substance: OMALIZUMAB
     Route: 058
     Dates: start: 20141124
  6. XOLAIR [Suspect]
     Active Substance: OMALIZUMAB
     Indication: ASTHMA
     Route: 058
     Dates: start: 20140206

REACTIONS (19)
  - Nausea [Recovered/Resolved]
  - Nasal congestion [Recovering/Resolving]
  - Paranasal sinus hypersecretion [Not Recovered/Not Resolved]
  - Ear infection [Unknown]
  - Cough [Unknown]
  - Dyspnoea [Recovering/Resolving]
  - Sinusitis [Recovered/Resolved]
  - Hypersensitivity [Recovering/Resolving]
  - Weight increased [Unknown]
  - Blood pressure increased [Not Recovered/Not Resolved]
  - Injection site erythema [Recovered/Resolved]
  - Injection site pain [Recovered/Resolved]
  - Nasopharyngitis [Recovered/Resolved]
  - Vitreous floaters [Unknown]
  - Mastoiditis [Unknown]
  - Injection site swelling [Recovered/Resolved]
  - Sinus congestion [Not Recovered/Not Resolved]
  - Peripheral swelling [Unknown]
  - Injection site pruritus [Recovered/Resolved]

NARRATIVE: CASE EVENT DATE: 20140206
